FAERS Safety Report 14312322 (Version 1)
Quarter: 2017Q4

REPORT INFORMATION
  Report Type: Spontaneous
  Country: US (occurrence: US)
  Receive Date: 20171221
  Receipt Date: 20171221
  Transmission Date: 20180321
  Serious: Yes (Other)
  Sender: FDA-Public Use
  Company Number: US-INCYTE CORPORATION-2017IN009661

PATIENT

DRUGS (3)
  1. JAKAFI [Suspect]
     Active Substance: RUXOLITINIB
     Dosage: 5 MG, BID
     Route: 048
  2. XANAX [Concomitant]
     Active Substance: ALPRAZOLAM
     Indication: PRODUCT USED FOR UNKNOWN INDICATION
  3. JAKAFI [Suspect]
     Active Substance: RUXOLITINIB
     Indication: POLYCYTHAEMIA VERA
     Dosage: 10 MG, BID
     Route: 048
     Dates: start: 20171106

REACTIONS (4)
  - Arrhythmia [Unknown]
  - Headache [Unknown]
  - Contusion [Unknown]
  - Dizziness [Unknown]

NARRATIVE: CASE EVENT DATE: 20171106
